FAERS Safety Report 19940000 (Version 3)
Quarter: 2022Q3

REPORT INFORMATION
  Report Type: Report from Study
  Country: US (occurrence: US)
  Receive Date: 20211011
  Receipt Date: 20220714
  Transmission Date: 20221027
  Serious: Yes (Hospitalization, Other)
  Sender: FDA-Public Use
  Company Number: US-SA-SAC20210804000541

PATIENT
  Age: 78 Year
  Sex: Male

DRUGS (4)
  1. DUPILUMAB [Suspect]
     Active Substance: DUPILUMAB
     Indication: Dermatitis atopic
     Dosage: 300 MG, QOW
     Route: 058
     Dates: start: 20210416, end: 20210909
  2. DUPILUMAB [Suspect]
     Active Substance: DUPILUMAB
     Indication: Eczema
     Dosage: 600 MG, 1X
     Route: 058
     Dates: start: 20210719, end: 20210719
  3. DUPILUMAB [Suspect]
     Active Substance: DUPILUMAB
     Dosage: 300 MG, QOW
     Route: 058
  4. DUPIXENT [Suspect]
     Active Substance: DUPILUMAB
     Indication: Eczema
     Dosage: UNK

REACTIONS (9)
  - Dementia [Unknown]
  - Loss of consciousness [Recovering/Resolving]
  - Pyrexia [Recovered/Resolved]
  - Confusional state [Not Recovered/Not Resolved]
  - Urinary tract disorder [Recovering/Resolving]
  - Blood culture positive [Recovering/Resolving]
  - White blood cell count increased [Unknown]
  - Living in residential institution [Not Recovered/Not Resolved]
  - Transurethral prostatectomy [Unknown]

NARRATIVE: CASE EVENT DATE: 20210701
